FAERS Safety Report 7526356-9 (Version None)
Quarter: 2011Q2

REPORT INFORMATION
  Report Type: 
  Country: None (occurrence: None)
  Receive Date: 20110606
  Receipt Date: 20110527
  Transmission Date: 20111010
  Serious: Yes (Other)
  Sender: FDA-Public Use
  Company Number: JP-ABBOTT-11P-087-0729112-00

PATIENT
  Age: 48 Year
  Sex: Male

DRUGS (8)
  1. TRIMETHOPRIM + SULFAMETHOXAZOLE [Concomitant]
     Indication: PROPHYLAXIS
  2. ITRACONAZOLE [Concomitant]
     Indication: PROPHYLAXIS
  3. METHOTREXATE [Concomitant]
     Indication: PRODUCT USED FOR UNKNOWN INDICATION
     Dosage: 10 MG/SQM ON DAY ONE
  4. METHOTREXATE [Concomitant]
     Dosage: 7 MG/SQM ON DAYS 3, 6, AND 11
  5. TRIMETHOPRIM + SULFAMETHOXAZOLE [Concomitant]
     Indication: PNEUMOCYSTIS JIROVECI PNEUMONIA
     Dosage: 80/400 MG
     Route: 048
  6. CYCLOSPORINE [Suspect]
     Indication: PROPHYLAXIS AGAINST GRAFT VERSUS HOST DISEASE
     Dosage: 3 MG/KG/DAY
     Route: 042
  7. GANCICLOVIR [Concomitant]
     Indication: CYTOMEGALOVIRUS TEST
  8. ITRACONAZOLE [Concomitant]
     Indication: FUNGAL INFECTION
     Dosage: 200 MG DAILY
     Route: 048

REACTIONS (2)
  - CHRONIC GRAFT VERSUS HOST DISEASE [None]
  - NOCARDIOSIS [None]
